FAERS Safety Report 11147342 (Version 1)
Quarter: 2015Q2

REPORT INFORMATION
  Report Type: Spontaneous
  Country: US (occurrence: US)
  Receive Date: 20150528
  Receipt Date: 20150528
  Transmission Date: 20150821
  Serious: No
  Sender: FDA-Public Use
  Company Number: US-ASTRAZENECA-2015SE51774

PATIENT
  Age: 46 Year
  Sex: Female
  Weight: 70 kg

DRUGS (8)
  1. NEXIUM 24HR [Suspect]
     Active Substance: ESOMEPRAZOLE MAGNESIUM
     Indication: ABDOMINAL PAIN UPPER
     Dosage: 44.6 MG; TWO TIMES A DAY, , 22.3 MG,  2 CAPSULES AT NIGHT
     Route: 048
  2. NEXIUM 24HR [Suspect]
     Active Substance: ESOMEPRAZOLE MAGNESIUM
     Indication: GASTROOESOPHAGEAL REFLUX DISEASE
     Dosage: 44.6 MG; TWO TIMES A DAY,  22.3 MG, 2 CAPSULES IN THE MORNING
     Route: 048
  3. NEXIUM 24HR [Suspect]
     Active Substance: ESOMEPRAZOLE MAGNESIUM
     Indication: DYSPEPSIA
     Dosage: 44.6 MG; TWO TIMES A DAY, , 22.3 MG,  2 CAPSULES AT NIGHT
     Route: 048
  4. NEXIUM 24HR [Suspect]
     Active Substance: ESOMEPRAZOLE MAGNESIUM
     Indication: ABDOMINAL PAIN UPPER
     Dosage: 44.6 MG; TWO TIMES A DAY,  22.3 MG, 2 CAPSULES IN THE MORNING
     Route: 048
  5. NEXIUM 24HR [Suspect]
     Active Substance: ESOMEPRAZOLE MAGNESIUM
     Indication: HIATUS HERNIA
     Dosage: 44.6 MG; TWO TIMES A DAY, , 22.3 MG,  2 CAPSULES AT NIGHT
     Route: 048
  6. NEXIUM 24HR [Suspect]
     Active Substance: ESOMEPRAZOLE MAGNESIUM
     Indication: HIATUS HERNIA
     Dosage: 44.6 MG; TWO TIMES A DAY,  22.3 MG, 2 CAPSULES IN THE MORNING
     Route: 048
  7. NEXIUM 24HR [Suspect]
     Active Substance: ESOMEPRAZOLE MAGNESIUM
     Indication: DYSPEPSIA
     Dosage: 44.6 MG; TWO TIMES A DAY,  22.3 MG, 2 CAPSULES IN THE MORNING
     Route: 048
  8. NEXIUM 24HR [Suspect]
     Active Substance: ESOMEPRAZOLE MAGNESIUM
     Indication: GASTROOESOPHAGEAL REFLUX DISEASE
     Dosage: 44.6 MG; TWO TIMES A DAY, , 22.3 MG,  2 CAPSULES AT NIGHT
     Route: 048

REACTIONS (4)
  - Pruritus [Not Recovered/Not Resolved]
  - Rash erythematous [Unknown]
  - Intentional product misuse [Unknown]
  - Urticaria [Not Recovered/Not Resolved]
